FAERS Safety Report 25907235 (Version 2)
Quarter: 2025Q4

REPORT INFORMATION
  Report Type: Spontaneous
  Country: KR (occurrence: KR)
  Receive Date: 20251010
  Receipt Date: 20251124
  Transmission Date: 20260117
  Serious: Yes (Other)
  Sender: NOVO NORDISK
  Company Number: KR-NOVOPROD-1533901

PATIENT
  Age: 49 Year
  Sex: Male
  Weight: 84 kg

DRUGS (2)
  1. WEGOVY [Suspect]
     Active Substance: SEMAGLUTIDE
     Dosage: 2.4 MG, QW
     Dates: start: 202502, end: 20250927
  2. WEGOVY [Suspect]
     Active Substance: SEMAGLUTIDE
     Indication: Obesity
     Dosage: UNK
     Dates: start: 202410

REACTIONS (1)
  - Papillary thyroid cancer [Recovered/Resolved]

NARRATIVE: CASE EVENT DATE: 20250715
